FAERS Safety Report 4994782-8 (Version None)
Quarter: 2006Q1

REPORT INFORMATION
  Report Type: 
  Country: None (occurrence: None)
  Receive Date: 20060314
  Receipt Date: 20051212
  Transmission Date: 20060701
  Serious: Yes (Other)
  Sender: FDA-Public Use
  Company Number: 200514969BCC

PATIENT
  Age: 62 Year
  Sex: Female
  Weight: 89.8122 kg

DRUGS (2)
  1. ALEVE [Suspect]
     Indication: ARTHRALGIA
     Dosage: 440 MG, TOTAL DAILY, ORAL
     Route: 048
     Dates: start: 20051208
  2. ACETYLSALICYLIC ACID SRT [Suspect]
     Indication: MYOCARDIAL INFARCTION
     Dosage: 81 MG, QD, ORAL
     Route: 048

REACTIONS (7)
  - ANAPHYLACTIC SHOCK [None]
  - BLOOD PRESSURE ABNORMAL [None]
  - EYE SWELLING [None]
  - GENERALISED ERYTHEMA [None]
  - HYPERSENSITIVITY [None]
  - HYPERTENSION [None]
  - SWELLING [None]
